FAERS Safety Report 20412563 (Version 2)
Quarter: 2022Q1

REPORT INFORMATION
  Report Type: Report from Study
  Country: US (occurrence: US)
  Receive Date: 20220201
  Receipt Date: 20220202
  Transmission Date: 20220423
  Serious: Yes (Life-Threatening)
  Sender: FDA-Public Use
  Company Number: US-PFIZER INC-202200168185

PATIENT
  Age: 22 Year
  Sex: Male

DRUGS (15)
  1. TALAZOPARIB [Suspect]
     Active Substance: TALAZOPARIB
     Indication: Ewing^s sarcoma metastatic
     Dosage: DAY 1
     Dates: start: 20220120, end: 20220120
  2. TALAZOPARIB [Suspect]
     Active Substance: TALAZOPARIB
     Dosage: DAILY 2-6 OF EACH CYCLE
     Dates: start: 20220120, end: 20220125
  3. ONIVYDE [Suspect]
     Active Substance: IRINOTECAN HYDROCHLORIDE
     Indication: Ewing^s sarcoma metastatic
     Dosage: DAY 1 OF EACH CYCLE
     Dates: start: 20220120, end: 20220120
  4. SEPTRA [Concomitant]
     Active Substance: SULFAMETHOXAZOLE\TRIMETHOPRIM
     Indication: Infection prophylaxis
     Dosage: UNK
     Route: 048
     Dates: start: 20210901
  5. CEFIXIME [Concomitant]
     Active Substance: CEFIXIME
     Indication: Prophylaxis against diarrhoea
     Dosage: UNK
     Route: 048
     Dates: start: 20220120, end: 20220124
  6. VITAMIN D [Concomitant]
     Active Substance: VITAMIN D NOS
     Indication: Supplementation therapy
     Dosage: UNK
     Route: 048
     Dates: start: 20200220
  7. ERYTHROMYCIN [Concomitant]
     Active Substance: ERYTHROMYCIN
     Indication: Hordeolum
     Dosage: UNK (INTO AFFECTED EYE)
     Route: 047
     Dates: start: 20220114
  8. DOXYCYCLINE [Concomitant]
     Active Substance: DOXYCYCLINE
     Indication: Hordeolum
     Dosage: UNK
     Route: 048
     Dates: start: 20220121
  9. WELLBUTRIN [Concomitant]
     Active Substance: BUPROPION HYDROCHLORIDE
     Indication: Depression
     Dosage: UNK
     Route: 048
     Dates: start: 20201218
  10. WELLBUTRIN [Concomitant]
     Active Substance: BUPROPION HYDROCHLORIDE
     Indication: Anxiety
  11. TYLEMOL [Concomitant]
     Indication: Pain
     Dosage: UNK
     Route: 048
     Dates: start: 20200501
  12. LISINOPRIL [Concomitant]
     Active Substance: LISINOPRIL
     Indication: Cardiomyopathy
     Dosage: UNK (TEMPORARILY HELD D/T HYPOTENSION)
     Route: 048
     Dates: start: 20200812, end: 20220127
  13. SCOPOLAMINE [Concomitant]
     Active Substance: SCOPOLAMINE
     Indication: Nausea
     Dosage: UNK  (CHANGE EVERY 3 DAYS)
     Route: 062
  14. SERTRALINE HYDROCHLORIDE [Concomitant]
     Active Substance: SERTRALINE HYDROCHLORIDE
     Indication: Depression
     Dosage: UNK
     Route: 048
     Dates: start: 20190923
  15. SERTRALINE HYDROCHLORIDE [Concomitant]
     Active Substance: SERTRALINE HYDROCHLORIDE
     Indication: Anxiety

REACTIONS (1)
  - Hypotension [Recovered/Resolved]

NARRATIVE: CASE EVENT DATE: 20220127
